FAERS Safety Report 7419384-5 (Version None)
Quarter: 2011Q2

REPORT INFORMATION
  Report Type: 
  Country: None (occurrence: None)
  Receive Date: 20110415
  Receipt Date: 20110413
  Transmission Date: 20111010
  Serious: Yes (Death)
  Sender: FDA-Public Use
  Company Number: US-AMGEN-USACT2011017393

PATIENT
  Age: 51 Year
  Sex: Male
  Weight: 139.2 kg

DRUGS (23)
  1. ASPIRIN [Concomitant]
     Dosage: 325 MG, UNK
     Route: 048
  2. RENVELA [Concomitant]
     Indication: HYPERPHOSPHATAEMIA
     Dosage: UNK, UNK
     Dates: start: 20101004
  3. RENVELA [Concomitant]
     Route: 048
  4. VITAL D [Concomitant]
     Route: 048
  5. VITAMIN D [Concomitant]
     Dosage: UNK, UNK
     Route: 048
  6. AMLODIPINE [Concomitant]
     Indication: HYPERTENSION
     Dosage: 10 MG, UNK
     Route: 048
  7. LISINOPRIL [Concomitant]
     Indication: HYPERTENSION
     Dosage: 20 MG, UNK
     Route: 048
  8. PLAVIX [Concomitant]
     Dosage: 75 MG, UNK
     Route: 048
  9. PAROXETINE [Concomitant]
     Indication: DEPRESSION
     Dosage: 40 MG, UNK
     Route: 048
  10. EPOGEN [Concomitant]
     Route: 042
  11. VENOFER [Concomitant]
     Indication: ANAEMIA
     Dosage: 100 MG/M2, UNK
     Route: 042
  12. HYDROCODONE BITARTRATE [Concomitant]
     Indication: ARTHRALGIA
     Dosage: 10 MG, UNK
     Route: 048
  13. LOVASTATIN [Concomitant]
     Indication: HYPERLIPIDAEMIA
     Dosage: 40 MG, UNK
     Route: 048
  14. CINACALCET HYDROCHLORIDE [Suspect]
     Indication: HYPERPARATHYROIDISM SECONDARY
     Dosage: 30 MG, UNK
  15. EPOGEN [Concomitant]
     Indication: ANAEMIA
     Dosage: UNK, UNK
     Route: 042
  16. DIPHENHYDRAMINE [Concomitant]
     Dosage: 50 MG, UNK
     Route: 048
  17. HEPARIN [Concomitant]
     Dosage: UNK, UNK
     Route: 042
  18. CINACALCET [Suspect]
     Dates: start: 20110307, end: 20110307
  19. PLAVIX [Concomitant]
     Route: 048
  20. RENVELA [Concomitant]
     Dates: start: 20101004
  21. HECTOROL [Concomitant]
     Indication: HYPERPARATHYROIDISM
     Dosage: 2 A?G, UNK
     Route: 042
  22. CARVEDILOL [Concomitant]
     Indication: HYPERTENSION
     Dosage: 25 MG, UNK
     Route: 048
  23. HEPARIN [Concomitant]
     Route: 042

REACTIONS (1)
  - SUDDEN DEATH [None]
